FAERS Safety Report 11446072 (Version 1)
Quarter: 2015Q3

REPORT INFORMATION
  Report Type: Spontaneous
  Country: US (occurrence: US)
  Receive Date: 20150831
  Receipt Date: 20150831
  Transmission Date: 20151125
  Serious: No
  Sender: FDA-Public Use
  Company Number: US-ELI_LILLY_AND_COMPANY-US200809004008

PATIENT
  Age: 53 Year
  Sex: Female

DRUGS (1)
  1. CYMBALTA [Suspect]
     Active Substance: DULOXETINE HYDROCHLORIDE
     Indication: PAIN
     Dosage: 30 MG, DAILY (1/D)
     Route: 048
     Dates: start: 200808, end: 20080913

REACTIONS (8)
  - Nausea [Unknown]
  - Dizziness [Unknown]
  - Vomiting [Unknown]
  - Activities of daily living impaired [Unknown]
  - Depression [Unknown]
  - Obsessive thoughts [Unknown]
  - Abnormal behaviour [Unknown]
  - Malaise [Unknown]

NARRATIVE: CASE EVENT DATE: 2008
